FAERS Safety Report 17801140 (Version 2)
Quarter: 2022Q4

REPORT INFORMATION
  Report Type: Spontaneous
  Country: US (occurrence: None)
  Receive Date: 20200519
  Receipt Date: 20221108
  Transmission Date: 20230113
  Serious: Yes (Death, Life-Threatening, Hospitalization, Other)
  Sender: FDA-Public Use
  Company Number: US-MLMSERVICE-20200507-2293007-1

PATIENT
  Age: 15 Year
  Sex: Female

DRUGS (2)
  1. METHOTREXATE [Suspect]
     Active Substance: METHOTREXATE
     Indication: Crohn^s disease
     Route: 065
  2. MERCAPTOPURINE [Suspect]
     Active Substance: MERCAPTOPURINE
     Indication: Crohn^s disease
     Route: 065

REACTIONS (12)
  - Hepatosplenomegaly [Fatal]
  - Hepatosplenic T-cell lymphoma [Fatal]
  - Lower respiratory tract infection fungal [Fatal]
  - Haemophagocytic lymphohistiocytosis [Fatal]
  - Hyperammonaemia [Fatal]
  - Metabolic acidosis [Fatal]
  - Hypoglycaemia [Fatal]
  - Renal failure [Fatal]
  - Hypoxia [Fatal]
  - Hepatic failure [Fatal]
  - Coagulopathy [Fatal]
  - Product use in unapproved indication [Unknown]
